FAERS Safety Report 21346110 (Version 4)
Quarter: 2023Q1

REPORT INFORMATION
  Report Type: Spontaneous
  Country: FR (occurrence: FR)
  Receive Date: 20220917
  Receipt Date: 20230222
  Transmission Date: 20230418
  Serious: Yes (Death, Other)
  Sender: FDA-Public Use
  Company Number: FR-SANOFI-01244177

PATIENT
  Age: 14 Year
  Sex: Male
  Weight: 70 kg

DRUGS (4)
  1. PAROXETINE [Suspect]
     Active Substance: PAROXETINE
     Indication: Product used for unknown indication
     Dosage: 2 DOSAGE FORM, ONCE A DAY(MORNING)
     Route: 065
     Dates: start: 20210304
  2. PAROXETINE HYDROCHLORIDE [Concomitant]
     Active Substance: PAROXETINE HYDROCHLORIDE
     Indication: Product used for unknown indication
     Dosage: 2 DOSAGE FORM, ONCE A DAY(IN THE MORNING)
     Route: 065
  3. PAROXETINE [Concomitant]
     Active Substance: PAROXETINE
     Indication: Product used for unknown indication
     Dosage: UNK
     Dates: start: 20210304
  4. CYAMEMAZINE [Suspect]
     Active Substance: CYAMEMAZINE
     Indication: Product used for unknown indication
     Dosage: 12 GTT DROPS, ONCE A DAY(IN THE EVENING)
     Route: 048
     Dates: start: 20210726, end: 20210910

REACTIONS (12)
  - Completed suicide [Fatal]
  - Mental impairment [Fatal]
  - Affective disorder [Fatal]
  - Affect lability [Fatal]
  - Insomnia [Fatal]
  - Irritability [Fatal]
  - Thinking abnormal [Fatal]
  - Disinhibition [Fatal]
  - Aggression [Fatal]
  - Dissociation [Unknown]
  - Judgement impaired [Fatal]
  - Sleep disorder [Unknown]

NARRATIVE: CASE EVENT DATE: 20210101
